FAERS Safety Report 6110425-4 (Version None)
Quarter: 2009Q1

REPORT INFORMATION
  Report Type: 
  Country: None (occurrence: None)
  Receive Date: 20090310
  Receipt Date: 20090226
  Transmission Date: 20090719
  Serious: Yes (Hospitalization)
  Sender: FDA-Public Use
  Company Number: FR-ROCHE-617407

PATIENT
  Sex: Male

DRUGS (1)
  1. MYCOPHENOLATE MOFETIL [Suspect]
     Indication: LIVER TRANSPLANT
     Route: 065

REACTIONS (4)
  - ASCITES [None]
  - BILIARY ANASTOMOSIS COMPLICATION [None]
  - RENAL FAILURE [None]
  - SEPSIS [None]
